FAERS Safety Report 13864657 (Version 1)
Quarter: 2017Q3

REPORT INFORMATION
  Report Type: Spontaneous
  Country: US (occurrence: US)
  Receive Date: 20170813
  Receipt Date: 20170813
  Transmission Date: 20171127
  Serious: Yes (Disabling)
  Sender: FDA-Public Use
  Company Number: None

PATIENT
  Age: 29 Year
  Sex: Female
  Weight: 52.65 kg

DRUGS (3)
  1. METRONIDAZOLE. [Suspect]
     Active Substance: METRONIDAZOLE
     Indication: COLITIS
     Dosage: ?          QUANTITY:1 TABLET(S);?
     Route: 048
     Dates: start: 20170809, end: 20170811
  2. WOMEN^S ONE A DAY MULTIVITAMIN [Concomitant]
  3. TRI-SPRINTEC BIRTH CONTROL [Concomitant]

REACTIONS (7)
  - Nausea [None]
  - Diarrhoea [None]
  - Migraine [None]
  - Hypoaesthesia [None]
  - Gastrointestinal pain [None]
  - Vomiting [None]
  - Paraesthesia [None]

NARRATIVE: CASE EVENT DATE: 20170811
